FAERS Safety Report 6358230-8 (Version None)
Quarter: 2009Q3

REPORT INFORMATION
  Report Type: 
  Country: None (occurrence: None)
  Receive Date: 20090916
  Receipt Date: 20090907
  Transmission Date: 20100115
  Serious: Yes (Other)
  Sender: FDA-Public Use
  Company Number: IE-ASTRAZENECA-2009SE11983

PATIENT
  Sex: Male
  Weight: 120 kg

DRUGS (1)
  1. MARCAINE 0.5 % HEAVY [Suspect]
     Indication: SPINAL ANAESTHESIA
     Route: 037

REACTIONS (2)
  - ANAESTHETIC COMPLICATION [None]
  - DRUG INEFFECTIVE [None]
